FAERS Safety Report 9577226 (Version 1)
Quarter: 2013Q4

REPORT INFORMATION
  Report Type: Spontaneous
  Country: US (occurrence: US)
  Receive Date: 20131001
  Receipt Date: 20131001
  Transmission Date: 20140711
  Serious: No
  Sender: FDA-Public Use
  Company Number: US-AMGEN-USASP2013006726

PATIENT
  Sex: Female

DRUGS (7)
  1. ENBREL [Suspect]
     Indication: ANKYLOSING SPONDYLITIS
     Dosage: 50 MG, QWK
     Route: 058
  2. VOLTAREN                           /00372301/ [Concomitant]
     Dosage: 1 %, UNK
  3. OMEPRAZOLE [Concomitant]
     Dosage: 20 MG, UNK
  4. CAMILA [Concomitant]
     Dosage: 0.35 MG, UNK
  5. BUPROPION [Concomitant]
     Dosage: 150 MG, UNK
  6. VITAMIN B2                         /00154901/ [Concomitant]
     Dosage: 100 MG, UNK
  7. VENLAFAXINE [Concomitant]
     Dosage: 75 MG, UNK

REACTIONS (2)
  - Injection site pain [Unknown]
  - Drug ineffective [Unknown]
